FAERS Safety Report 18791268 (Version 2)
Quarter: 2025Q3

REPORT INFORMATION
  Report Type: Spontaneous
  Country: US (occurrence: US)
  Receive Date: 20210126
  Receipt Date: 20250818
  Transmission Date: 20251021
  Serious: Yes (Other)
  Sender: PFIZER
  Company Number: US-PFIZER INC-2020475645

PATIENT
  Age: 56 Year
  Sex: Male
  Weight: 84.5 kg

DRUGS (4)
  1. INLYTA [Suspect]
     Active Substance: AXITINIB
     Indication: Renal cancer
     Dosage: 5 MG, 2X/DAY (TAKE 1 TABLET (5MG) BY MOUTH EVERY 12 HOURS)
     Route: 048
     Dates: start: 20201017, end: 20201020
  2. INLYTA [Suspect]
     Active Substance: AXITINIB
     Dosage: 7 MG, 2X/DAY (1 TABLET (5MG), TWICE A DAY AND 2 TABLETS (1 MG), TWICE A DAY)
     Route: 048
     Dates: start: 202012
  3. INLYTA [Suspect]
     Active Substance: AXITINIB
     Dates: start: 20201112, end: 20240229
  4. INLYTA [Suspect]
     Active Substance: AXITINIB
     Dosage: 3 MG, 2X/DAY

REACTIONS (4)
  - Renal cancer [Unknown]
  - Malignant neoplasm progression [Unknown]
  - Blister [Unknown]
  - Off label use [Unknown]

NARRATIVE: CASE EVENT DATE: 20220727
